FAERS Safety Report 8774813 (Version 2)
Quarter: 2015Q1

REPORT INFORMATION
  Report Type: Spontaneous
  Country: US (occurrence: US)
  Receive Date: 20120910
  Receipt Date: 20150304
  Transmission Date: 20150721
  Serious: Yes (Other)
  Sender: FDA-Public Use
  Company Number: US-ROCHE-1120266

PATIENT
  Age: 62 Year
  Sex: Female

DRUGS (12)
  1. BONIVA [Suspect]
     Active Substance: IBANDRONATE SODIUM
     Indication: OSTEOPOROSIS
     Route: 048
     Dates: start: 200808, end: 201107
  2. FOSAMAX [Suspect]
     Active Substance: ALENDRONATE SODIUM
     Indication: BONE LOSS
  3. FOSAMAX PLUS D [Suspect]
     Active Substance: ALENDRONATE SODIUM\CHOLECALCIFEROL
     Indication: CEREBRAL PALSY
     Route: 048
     Dates: start: 2001, end: 200802
  4. FOSAMAX [Suspect]
     Active Substance: ALENDRONATE SODIUM
     Indication: OSTEOPENIA
     Route: 048
     Dates: start: 2001, end: 200802
  5. FOSAMAX PLUS D [Suspect]
     Active Substance: ALENDRONATE SODIUM\CHOLECALCIFEROL
     Indication: BONE LOSS
  6. BONIVA [Suspect]
     Active Substance: IBANDRONATE SODIUM
     Indication: BONE LOSS
  7. FOSAMAX [Suspect]
     Active Substance: ALENDRONATE SODIUM
     Indication: OSTEOPOROSIS
     Route: 065
     Dates: start: 200104, end: 200807
  8. ALENDRONATE SODIUM. [Suspect]
     Active Substance: ALENDRONATE SODIUM
     Indication: BONE LOSS
  9. BONIVA [Suspect]
     Active Substance: IBANDRONATE SODIUM
     Indication: OSTEOPENIA
     Route: 048
     Dates: start: 200808, end: 2010
  10. BONIVA [Suspect]
     Active Substance: IBANDRONATE SODIUM
     Indication: CEREBRAL PALSY
  11. FOSAMAX [Suspect]
     Active Substance: ALENDRONATE SODIUM
     Indication: CEREBRAL PALSY
  12. ALENDRONATE SODIUM. [Suspect]
     Active Substance: ALENDRONATE SODIUM
     Indication: CEREBRAL PALSY
     Route: 048
     Dates: start: 200803, end: 200807

REACTIONS (8)
  - Anxiety [Unknown]
  - Injury [Unknown]
  - Emotional distress [Unknown]
  - Stress fracture [Unknown]
  - Low turnover osteopathy [Unknown]
  - Tibia fracture [Unknown]
  - Femur fracture [Unknown]
  - Depression [Unknown]

NARRATIVE: CASE EVENT DATE: 201106
